FAERS Safety Report 6866558-8 (Version None)
Quarter: 2010Q3

REPORT INFORMATION
  Report Type: 
  Country: None (occurrence: None)
  Receive Date: 20100722
  Receipt Date: 20100709
  Transmission Date: 20110219
  Serious: Yes (Other)
  Sender: FDA-Public Use
  Company Number: PHHY2010NL22752

PATIENT
  Age: 77 Year
  Sex: Female

DRUGS (1)
  1. ZOMETA [Suspect]
     Dosage: 4 MG
     Route: 042
     Dates: start: 20100101

REACTIONS (11)
  - ANGIOEDEMA [None]
  - CATARACT [None]
  - CATARACT OPERATION [None]
  - CELLULITIS ORBITAL [None]
  - CONJUNCTIVITIS [None]
  - EYELID OEDEMA [None]
  - INFLUENZA LIKE ILLNESS [None]
  - LACRIMAL DISORDER [None]
  - LACRIMATION INCREASED [None]
  - SCLERITIS [None]
  - VISUAL ACUITY REDUCED [None]
